FAERS Safety Report 9165999 (Version 1)
Quarter: 2013Q1

REPORT INFORMATION
  Report Type: Spontaneous
  Country: US (occurrence: None)
  Receive Date: 20130301
  Receipt Date: 20130301
  Transmission Date: 20140127
  Serious: Yes (Other)
  Sender: FDA-Public Use
  Company Number: 20130064

PATIENT
  Age: 54 Year
  Sex: Female

DRUGS (3)
  1. CYCLOSPORINE INJECTION, USP (866-10) 50 MG/ML [Suspect]
     Indication: IMMUNOSUPPRESSANT DRUG THERAPY
     Dates: start: 2009, end: 20110101
  2. CYCLOSPORINE (ORAL) UNK [Suspect]
     Indication: IMMUNOSUPPRESSANT DRUG THERAPY
     Dosage: TWICE
     Route: 048
     Dates: start: 20110201, end: 20111001
  3. PREDNISONE [Suspect]
     Indication: IMMUNOSUPPRESSANT DRUG THERAPY
     Dosage: ; 15
     Route: 048
     Dates: start: 2009

REACTIONS (2)
  - Myopathy [None]
  - Renal failure acute [None]
